FAERS Safety Report 13692019 (Version 1)
Quarter: 2017Q2

REPORT INFORMATION
  Report Type: Spontaneous
  Country: US (occurrence: US)
  Receive Date: 20170626
  Receipt Date: 20170626
  Transmission Date: 20170830
  Serious: Yes (Other)
  Sender: FDA-Public Use
  Company Number: US-BRISTOL-MYERS SQUIBB COMPANY-BMS-2017-054234

PATIENT
  Sex: Male
  Weight: 165 kg

DRUGS (1)
  1. ELIQUIS [Suspect]
     Active Substance: APIXABAN
     Indication: CEREBROVASCULAR ACCIDENT PROPHYLAXIS
     Dosage: 2.5 MG, QD
     Route: 048

REACTIONS (5)
  - Arthralgia [Unknown]
  - Prescribed underdose [Unknown]
  - Contusion [Unknown]
  - Haemorrhage subcutaneous [Unknown]
  - Balance disorder [Unknown]
